FAERS Safety Report 22171213 (Version 2)
Quarter: 2023Q2

REPORT INFORMATION
  Report Type: Report from Study
  Country: CA (occurrence: CA)
  Receive Date: 20230404
  Receipt Date: 20230405
  Transmission Date: 20230721
  Serious: Yes (Death, Hospitalization, Other)
  Sender: FDA-Public Use
  Company Number: CA-KOREA IPSEN Pharma-2023-05259

PATIENT
  Age: 81 Year
  Sex: Male

DRUGS (13)
  1. LANREOTIDE ACETATE [Suspect]
     Active Substance: LANREOTIDE ACETATE
     Indication: Carcinoid syndrome
     Dosage: 120 MG EVERY 4 WEEKS
     Route: 058
     Dates: start: 20230111
  2. PANTOPRAZOLE [Concomitant]
     Active Substance: PANTOPRAZOLE
  3. LOMOTIL [Concomitant]
     Active Substance: ATROPINE SULFATE\DIPHENOXYLATE HYDROCHLORIDE
     Dosage: 2.5/0.025 MG TAKE 2 TABLETS QID
  4. METOPROLOL [Concomitant]
     Active Substance: METOPROLOL
  5. PERINDOPRIL ERBUMINE [Concomitant]
     Active Substance: PERINDOPRIL ERBUMINE
     Dosage: 1 MG OD
  6. AMOXICILLIN\CLAVULANIC ACID [Concomitant]
     Active Substance: AMOXICILLIN\CLAVULANIC ACID
     Dosage: 500/125 MG BID
  7. QUETIAPINE [Concomitant]
     Active Substance: QUETIAPINE
     Dosage: 25 MG QHS
  8. IMODIUM CALMING LIQUID [Concomitant]
     Dosage: 2 MG TAKE 30 ML (4 MG) Q4H
  9. CODEINE [Concomitant]
     Active Substance: CODEINE
     Dosage: 30 MG QID
  10. FUROSEMIDE [Concomitant]
     Active Substance: FUROSEMIDE
     Dosage: 40 MG BID FOR 30 DAYS
  11. MINERALS\VITAMINS [Concomitant]
     Active Substance: MINERALS\VITAMINS
     Dosage: OD
  12. OLODATEROL HYDROCHLORIDE\TIOTROPIUM BROMIDE MONOHYDRATE [Concomitant]
     Active Substance: OLODATEROL HYDROCHLORIDE\TIOTROPIUM BROMIDE MONOHYDRATE
     Dosage: 2.5 MG/2.5 MCG/ACT 2 PUFFS OD
  13. ALVESCO [Concomitant]
     Active Substance: CICLESONIDE
     Dosage: 200 MCG/DOSE 2 PUFFS BID

REACTIONS (3)
  - Death [Fatal]
  - Haematological infection [Unknown]
  - Off label use [Unknown]

NARRATIVE: CASE EVENT DATE: 20230313
